FAERS Safety Report 5473965-7 (Version None)
Quarter: 2007Q3

REPORT INFORMATION
  Report Type: 
  Country: None (occurrence: None)
  Receive Date: 20070904
  Receipt Date: 20061212
  Transmission Date: 20080115
  Serious: Yes (Other)
  Sender: FDA-Public Use
  Company Number: 2006153006

PATIENT
  Sex: Male
  Weight: 83 kg

DRUGS (8)
  1. CAVERJECT [Suspect]
     Indication: ERECTILE DYSFUNCTION
     Dosage: (20 MG)
     Dates: start: 20060101
  2. LIPITOR [Concomitant]
  3. FISH OIL (FISH OIL) [Concomitant]
  4. ACETYLSALICYLIC ACID SRT [Concomitant]
  5. CENTRUM (MINERALS NOS, VITAMINS NOS) [Concomitant]
  6. GARLIC (GARLIC) [Concomitant]
  7. VITAMIN E [Concomitant]
  8. CALCIUM (CALCIUM) [Concomitant]

REACTIONS (3)
  - ERECTILE DYSFUNCTION [None]
  - ERECTION INCREASED [None]
  - PIGMENTATION DISORDER [None]
